FAERS Safety Report 15754142 (Version 1)
Quarter: 2018Q4

REPORT INFORMATION
  Report Type: Spontaneous
  Country: GB (occurrence: GB)
  Receive Date: 20181223
  Receipt Date: 20181223
  Transmission Date: 20190205
  Serious: Yes (Death, Other)
  Sender: FDA-Public Use
  Company Number: GB-INGENUS PHARMACEUTICALS NJ, LLC-ING201812-001189

PATIENT
  Age: 80 Year
  Sex: Female

DRUGS (3)
  1. CARISOPRODOL, ASPIRIN AND CODEINE PHOSPHATE [Suspect]
     Active Substance: ASPIRIN\CARISOPRODOL\CODEINE PHOSPHATE
  2. FONDAPARINUX [Concomitant]
     Active Substance: FONDAPARINUX
  3. CLOPIDOGREL [Suspect]
     Active Substance: CLOPIDOGREL BISULFATE

REACTIONS (2)
  - Hypotension [Not Recovered/Not Resolved]
  - Splenic rupture [Fatal]
